FAERS Safety Report 17286390 (Version 2)
Quarter: 2020Q1

REPORT INFORMATION
  Report Type: Spontaneous
  Country: US (occurrence: US)
  Receive Date: 20200118
  Receipt Date: 20200227
  Transmission Date: 20200409
  Serious: No
  Sender: FDA-Public Use
  Company Number: US-BIOGEN-2019BI00819688

PATIENT
  Sex: Male
  Weight: 144.24 kg

DRUGS (5)
  1. TYSABRI [Suspect]
     Active Substance: NATALIZUMAB
     Indication: RELAPSING-REMITTING MULTIPLE SCLEROSIS
     Dosage: INFUSED OVER ONE HOUR
     Route: 042
     Dates: start: 20180516
  2. LOSARTAN. [Concomitant]
     Active Substance: LOSARTAN
     Dosage: LOSARTAN 25 MG TABLET 1OP QD
     Route: 048
  3. PANTOPRAZOLE [Concomitant]
     Active Substance: PANTOPRAZOLE
     Dosage: PANTOPRAZOLE 40 MG TABLET DELAYED RELEASE (TAKE 1 TABLET EVERY DAY),
     Route: 065
  4. ATIVAN [Concomitant]
     Active Substance: LORAZEPAM
     Dosage: ATIVAN (0.5 MG TABLET),
     Route: 065
  5. PROTONIX [Concomitant]
     Active Substance: PANTOPRAZOLE SODIUM
     Dosage: PROTONIX 40 MG INTRAVENOUS SOLUTION
     Route: 042

REACTIONS (2)
  - Multiple sclerosis relapse [Unknown]
  - Hypoacusis [Unknown]
